FAERS Safety Report 5162761-6 (Version None)
Quarter: 2006Q4

REPORT INFORMATION
  Report Type: 
  Country: None (occurrence: None)
  Receive Date: 20061121
  Receipt Date: 20061114
  Transmission Date: 20070319
  Serious: Yes (Other)
  Sender: FDA-Public Use
  Company Number: GXBR2006US01839

PATIENT
  Sex: Female

DRUGS (6)
  1. NITROFURANTOIN [Suspect]
     Indication: URINARY TRACT INFECTION
     Dosage: SEE IMAGE, ORAL
     Route: 048
     Dates: start: 20060701, end: 20060701
  2. NITROFURANTOIN [Suspect]
     Indication: URINARY TRACT INFECTION
     Dosage: SEE IMAGE, ORAL
     Route: 048
     Dates: start: 20060809, end: 20060809
  3. NITROFURANTOIN [Suspect]
     Indication: URINARY TRACT INFECTION
     Dosage: SEE IMAGE, ORAL
     Route: 048
     Dates: start: 20060718
  4. NEURONTIN [Concomitant]
  5. CALCIUM (CALCIUM) [Concomitant]
  6. VITAMINS [Concomitant]

REACTIONS (15)
  - BALANCE DISORDER [None]
  - CHILLS [None]
  - COUGH [None]
  - DYSPNOEA [None]
  - FALL [None]
  - FATIGUE [None]
  - HEART RATE INCREASED [None]
  - LOSS OF CONSCIOUSNESS [None]
  - MALAISE [None]
  - PAIN [None]
  - PYREXIA [None]
  - RIB FRACTURE [None]
  - THIRST [None]
  - TREMOR [None]
  - URINARY TRACT INFECTION [None]
